FAERS Safety Report 8779041 (Version 2)
Quarter: 2012Q4

REPORT INFORMATION
  Report Type: 
  Country: IN (occurrence: IN)
  Receive Date: 20120912
  Receipt Date: 20121023
  Transmission Date: 20130627
  Serious: Yes (Hospitalization, Other)
  Sender: FDA-Public Use
  Company Number: IN-PFIZER INC-2012222339

PATIENT
  Sex: Female

DRUGS (1)
  1. SUTENT [Suspect]
     Indication: METASTATIC RENAL CELL CARCINOMA
     Dosage: 50 mg, 1x/day
     Route: 048
     Dates: start: 20120616, end: 201208

REACTIONS (4)
  - Blood count abnormal [Recovered/Resolved]
  - Vomiting [Recovered/Resolved]
  - Mouth ulceration [Not Recovered/Not Resolved]
  - Eating disorder [Not Recovered/Not Resolved]
